FAERS Safety Report 8996734 (Version 1)
Quarter: 2013Q1

REPORT INFORMATION
  Report Type: Report from Study
  Country: IN (occurrence: IN)
  Receive Date: 20130104
  Receipt Date: 20130104
  Transmission Date: 20140127
  Serious: Yes (Death, Life-Threatening)
  Sender: FDA-Public Use
  Company Number: IN-NOVOPROD-351345

PATIENT
  Age: 62 Year
  Sex: Male
  Weight: 64.3 kg

DRUGS (1)
  1. LIRAGLUTIDE FLEXPEN [Suspect]
     Indication: TYPE 2 DIABETES MELLITUS
     Dosage: 0.6 MG, QD
     Route: 058
     Dates: start: 20110426, end: 20120327

REACTIONS (2)
  - Chest pain [Fatal]
  - Dyspnoea [Fatal]
